FAERS Safety Report 9710047 (Version 1)
Quarter: 2013Q4

REPORT INFORMATION
  Report Type: Report from Study
  Country: US (occurrence: US)
  Receive Date: 20131126
  Receipt Date: 20131126
  Transmission Date: 20140711
  Serious: Yes (Other)
  Sender: FDA-Public Use
  Company Number: US-ROCHE-1304667

PATIENT
  Age: 28 Year
  Sex: Female
  Weight: 55.84 kg

DRUGS (2)
  1. NUTROPIN AQ [Suspect]
     Indication: GROWTH HORMONE DEFICIENCY
     Route: 058
     Dates: start: 2011, end: 2013
  2. CORTROSYN [Concomitant]
     Route: 042
     Dates: start: 20130927, end: 20130927

REACTIONS (8)
  - Arthralgia [Unknown]
  - Joint stiffness [Unknown]
  - Menstruation irregular [Unknown]
  - Menorrhagia [Unknown]
  - Maternal exposure during pregnancy [Unknown]
  - Abortion spontaneous [Unknown]
  - Feeling cold [Unknown]
  - Weight decreased [Unknown]
